FAERS Safety Report 20425749 (Version 1)
Quarter: 2022Q1

REPORT INFORMATION
  Report Type: Report from Study
  Country: CA (occurrence: CA)
  Receive Date: 20220204
  Receipt Date: 20220204
  Transmission Date: 20220424
  Serious: No
  Sender: FDA-Public Use
  Company Number: CA-EXELIXIS-CABO-21040034

PATIENT
  Sex: Male

DRUGS (8)
  1. CABOMETYX [Suspect]
     Active Substance: CABOZANTINIB S-MALATE
     Indication: Renal cell carcinoma
     Dosage: 60 MG, QD
     Route: 048
     Dates: start: 20191203
  2. AMLODIPINE [Concomitant]
     Active Substance: AMLODIPINE BESYLATE
  3. EZETIMIBE [Concomitant]
     Active Substance: EZETIMIBE
  4. LEVOTHYROXINE [Concomitant]
     Active Substance: LEVOTHYROXINE
  5. LORAZEPAM [Concomitant]
     Active Substance: LORAZEPAM
  6. LOPERAMIDE [Concomitant]
     Active Substance: LOPERAMIDE
  7. RANITIDINE [Concomitant]
     Active Substance: RANITIDINE
  8. METOPROLOL [Concomitant]
     Active Substance: METOPROLOL

REACTIONS (5)
  - Cervical radiculopathy [Unknown]
  - Blood potassium decreased [Recovering/Resolving]
  - Blood magnesium decreased [Recovering/Resolving]
  - Muscle spasms [Recovering/Resolving]
  - Dyspepsia [Unknown]
